FAERS Safety Report 4374977-7 (Version None)
Quarter: 2004Q2

REPORT INFORMATION
  Report Type: 
  Country: None (occurrence: None)
  Receive Date: 20040604
  Receipt Date: 20040526
  Transmission Date: 20050107
  Serious: Yes (Death)
  Sender: FDA-Public Use
  Company Number: 2004AP02872

PATIENT
  Age: 86 Year
  Sex: Female

DRUGS (1)
  1. XYLOCAINE [Suspect]
     Dates: start: 20040514, end: 20040514

REACTIONS (1)
  - MEDICATION ERROR [None]
